FAERS Safety Report 17942467 (Version 2)
Quarter: 2020Q4

REPORT INFORMATION
  Report Type: Spontaneous
  Country: US (occurrence: US)
  Receive Date: 20200625
  Receipt Date: 20201112
  Transmission Date: 20210113
  Serious: No
  Sender: FDA-Public Use
  Company Number: US-GILEAD-2020-0475196

PATIENT
  Age: 63 Year
  Sex: Female

DRUGS (17)
  1. PROBIOTICS NOS [Concomitant]
     Active Substance: PROBIOTICS NOS
  2. ENZYME [Concomitant]
     Active Substance: UNSPECIFIED INGREDIENT
  3. VITAMIN D NOS [Concomitant]
     Active Substance: VITAMIN D NOS
  4. HAIR, SKIN + NAILS [BIOTIN] [Concomitant]
  5. SILVER NITRATE. [Concomitant]
     Active Substance: SILVER NITRATE
  6. VITAMIN C [Concomitant]
     Active Substance: ASCORBIC ACID
  7. ESTROGEL [Concomitant]
     Active Substance: ESTRADIOL
  8. CALCIUM + MAGNESIUM [Concomitant]
     Active Substance: CALCIUM\MAGNESIUM
  9. PAPAYA. [Concomitant]
     Active Substance: PAPAYA
  10. LYSINE [Concomitant]
     Active Substance: LYSINE
  11. EYEVITE [Concomitant]
  12. COENZYME Q10 [Concomitant]
     Active Substance: DIETARY SUPPLEMENT\UBIDECARENONE
  13. VITAMIN B12 [Concomitant]
     Active Substance: CYANOCOBALAMIN
  14. ECHINACEA HERB [ECHINACEA SPP.] [Concomitant]
  15. SOFOSBUVIR;VELPATASVIR [Suspect]
     Active Substance: SOFOSBUVIR\VELPATASVIR
     Indication: CHRONIC HEPATITIS C
     Dosage: 1 DOSAGE FORM, QD
     Route: 048
     Dates: start: 202005
  16. FISH OIL [Concomitant]
     Active Substance: FISH OIL
  17. LICORICE [GLYCYRRHIZA GLABRA] [Concomitant]
     Active Substance: GLYCYRRHIZA GLABRA\HERBALS

REACTIONS (6)
  - Asthenia [Not Recovered/Not Resolved]
  - Photopsia [Recovering/Resolving]
  - Fatigue [Not Recovered/Not Resolved]
  - Feeling abnormal [Not Recovered/Not Resolved]
  - Dyspnoea [Unknown]
  - Platelet count decreased [Unknown]

NARRATIVE: CASE EVENT DATE: 20201102
